FAERS Safety Report 9839150 (Version 2)
Quarter: 2014Q1

REPORT INFORMATION
  Report Type: Spontaneous
  Country: US (occurrence: US)
  Receive Date: 20140123
  Receipt Date: 20140326
  Transmission Date: 20141002
  Serious: No
  Sender: FDA-Public Use
  Company Number: US-009507513-1401USA006965

PATIENT
  Age: 32 Year
  Sex: Female
  Weight: 60.77 kg

DRUGS (1)
  1. NEXPLANON [Suspect]
     Indication: CONTRACEPTION
     Dosage: UNK
     Route: 059
     Dates: start: 20131024, end: 20131227

REACTIONS (5)
  - Emotional disorder [Recovered/Resolved]
  - Weight increased [Recovered/Resolved]
  - Abdominal pain upper [Recovered/Resolved]
  - Gastrointestinal pain [Recovered/Resolved]
  - Mood swings [Recovered/Resolved]
